FAERS Safety Report 6166261-6 (Version None)
Quarter: 2009Q2

REPORT INFORMATION
  Report Type: 
  Country: None (occurrence: None)
  Receive Date: 20090424
  Receipt Date: 20090417
  Transmission Date: 20091009
  Serious: Yes (Other)
  Sender: FDA-Public Use
  Company Number: US-BRISTOL-MYERS SQUIBB COMPANY-14584593

PATIENT
  Age: 56 Year
  Sex: Female

DRUGS (4)
  1. PACLITAXEL [Suspect]
     Indication: BREAST CANCER
     Dosage: 80 MG/M2 - ADMINISTERED OVER 60 MINS
     Route: 042
  2. DEXAMETHASONE 4MG TAB [Concomitant]
     Indication: PREMEDICATION
     Route: 042
  3. CIMETIDINE HCL [Concomitant]
     Indication: PREMEDICATION
  4. DIPHENHYDRAMINE HCL [Concomitant]
     Indication: PREMEDICATION

REACTIONS (3)
  - ERYTHEMA MULTIFORME [None]
  - ONYCHOLYSIS [None]
  - PHOTOSENSITIVITY REACTION [None]
